FAERS Safety Report 7642026-0 (Version None)
Quarter: 2011Q3

REPORT INFORMATION
  Report Type: 
  Country: None (occurrence: None)
  Receive Date: 20110728
  Receipt Date: 20110722
  Transmission Date: 20111222
  Serious: Yes (Hospitalization, Other)
  Sender: FDA-Public Use
  Company Number: US-MERCK-1107USA03069

PATIENT
  Sex: Female

DRUGS (3)
  1. RECLAST [Concomitant]
     Route: 065
     Dates: start: 20110701
  2. ACTONEL [Suspect]
     Route: 065
  3. FOSAMAX [Suspect]
     Route: 048

REACTIONS (7)
  - HYPERTENSION [None]
  - CARDIAC DISORDER [None]
  - GAIT DISTURBANCE [None]
  - GASTROINTESTINAL DISORDER [None]
  - NEOPLASM MALIGNANT [None]
  - ATRIAL FIBRILLATION [None]
  - HEART RATE IRREGULAR [None]
